FAERS Safety Report 17279724 (Version 1)
Quarter: 2020Q1

REPORT INFORMATION
  Report Type: Spontaneous
  Country: US (occurrence: US)
  Receive Date: 20200116
  Receipt Date: 20200116
  Transmission Date: 20200409
  Serious: Yes (Hospitalization, Other)
  Sender: FDA-Public Use
  Company Number: US-ORIENT PHARMA-000021

PATIENT
  Age: 15 Year
  Sex: Female

DRUGS (1)
  1. CARISOPRODOL. [Suspect]
     Active Substance: CARISOPRODOL
     Dosage: FORTY 350 MG OF EACH TABLET OF CARISOPRODOL (14 GM)

REACTIONS (8)
  - Overdose [Unknown]
  - Tremor [Unknown]
  - Sinus tachycardia [Unknown]
  - Coma [Recovering/Resolving]
  - Respiratory depression [Unknown]
  - Status epilepticus [Unknown]
  - Hypertension [Unknown]
  - Unresponsive to stimuli [Recovering/Resolving]
